FAERS Safety Report 9360918 (Version 3)
Quarter: 2014Q1

REPORT INFORMATION
  Report Type: Spontaneous
  Country: AT (occurrence: AT)
  Receive Date: 20130621
  Receipt Date: 20140314
  Transmission Date: 20141002
  Serious: Yes (Other)
  Sender: FDA-Public Use
  Company Number: AT-UCBSA-083271

PATIENT
  Sex: Female

DRUGS (2)
  1. CIMZIA [Suspect]
     Indication: RHEUMATOID ARTHRITIS
     Dosage: FOR 4 YEARS
  2. ARAVA [Suspect]

REACTIONS (11)
  - Intervertebral disc protrusion [Unknown]
  - Synovial cyst [Unknown]
  - Pain in extremity [Unknown]
  - Osteoarthritis [Unknown]
  - Pain [Unknown]
  - Diarrhoea [Unknown]
  - Erythema [Unknown]
  - Drug effect decreased [Unknown]
  - Hot flush [Not Recovered/Not Resolved]
  - Night sweats [Unknown]
  - Hyperhidrosis [Unknown]
